FAERS Safety Report 8318292 (Version 2)
Quarter: 2013Q4

REPORT INFORMATION
  Report Type: Spontaneous
  Country: US (occurrence: US)
  Receive Date: 20120103
  Receipt Date: 20131231
  Transmission Date: 20140711
  Serious: Yes (Other)
  Sender: FDA-Public Use
  Company Number: US-RANBAXY-2011US-51441

PATIENT
  Age: 51 Year
  Sex: Male

DRUGS (2)
  1. SIMVASTATIN [Suspect]
     Indication: PRODUCT USED FOR UNKNOWN INDICATION
     Dosage: UNK
     Route: 065
  2. BUPIVACAINE [Interacting]
     Indication: PAIN
     Dosage: UNK
     Route: 042

REACTIONS (7)
  - Hyperhidrosis [Recovered/Resolved]
  - Hypotension [Recovered/Resolved]
  - Dizziness [Recovered/Resolved]
  - Hepatotoxicity [Recovered/Resolved]
  - Drug interaction [Unknown]
  - Eosinophilia [Unknown]
  - Hypersensitivity [Unknown]
